FAERS Safety Report 13372686 (Version 1)
Quarter: 2017Q1

REPORT INFORMATION
  Report Type: Spontaneous
  Country: US (occurrence: US)
  Receive Date: 20170327
  Receipt Date: 20170327
  Transmission Date: 20170429
  Serious: No
  Sender: FDA-Public Use
  Company Number: US-BAYER-2017-056279

PATIENT
  Age: 2 Year
  Sex: Male
  Weight: 25 kg

DRUGS (1)
  1. ALEVE [Suspect]
     Active Substance: NAPROXEN SODIUM
     Dosage: 2 DF, UNK
     Route: 065
     Dates: start: 20170323, end: 20170323

REACTIONS (1)
  - Accidental exposure to product by child [Not Recovered/Not Resolved]

NARRATIVE: CASE EVENT DATE: 20170323
